FAERS Safety Report 7074812-2 (Version None)
Quarter: 2010Q4

REPORT INFORMATION
  Report Type: 
  Country: None (occurrence: None)
  Receive Date: 20101029
  Receipt Date: 20101019
  Transmission Date: 20110411
  Serious: Yes (Disabling, Other)
  Sender: FDA-Public Use
  Company Number: GB-B.I. PHARMACEUTICALS,INC./RIDGEFIELD-2010-UK-01008UK

PATIENT
  Age: 79 Year
  Sex: Male

DRUGS (2)
  1. PRAMIPEXOLE [Suspect]
     Indication: PARKINSON'S DISEASE
     Dosage: 3.75 MG
     Route: 048
     Dates: start: 20080101
  2. MANDOPAR [Suspect]
     Indication: PARKINSON'S DISEASE
     Dosage: 750 MG
     Route: 048
     Dates: start: 20080101

REACTIONS (2)
  - EXCESSIVE MASTURBATION [None]
  - HYPERSEXUALITY [None]
